FAERS Safety Report 17059507 (Version 1)
Quarter: 2019Q4

REPORT INFORMATION
  Report Type: Spontaneous
  Country: US (occurrence: US)
  Receive Date: 20191023
  Receipt Date: 20191023
  Transmission Date: 20200122
  Serious: No
  Sender: FDA-Public Use
  Company Number: None

PATIENT
  Age: 55 Year
  Sex: Female

DRUGS (2)
  1. TACROLIMUS  1MG  STRIDES PHARMA [Suspect]
     Active Substance: TACROLIMUS
     Route: 048
     Dates: start: 201906
  2. MYCOPHENOLATE 500MG  ROXANE [Suspect]
     Active Substance: MYCOPHENOLATE MOFETIL
     Indication: RENAL TRANSPLANT
     Route: 048
     Dates: start: 201906

REACTIONS (9)
  - Amnesia [None]
  - Poor quality sleep [None]
  - Blood glucose increased [None]
  - Muscle spasms [None]
  - Fatigue [None]
  - Nausea [None]
  - Chills [None]
  - Vomiting [None]
  - Skin burning sensation [None]

NARRATIVE: CASE EVENT DATE: 201909
